FAERS Safety Report 4799731-3 (Version None)
Quarter: 2005Q4

REPORT INFORMATION
  Report Type: 
  Country: None (occurrence: None)
  Receive Date: 20051011
  Receipt Date: 20051011
  Transmission Date: 20060501
  Serious: Yes (Hospitalization)
  Sender: FDA-Public Use
  Company Number: None

PATIENT
  Age: 59 Year
  Sex: Male
  Weight: 87.9978 kg

DRUGS (2)
  1. WARFARIN [Suspect]
     Indication: ARTERIAL BYPASS OPERATION
     Dosage: 10  MG 2 DAYS /WEEK ; 7.5 MG 5 DAYS /WEEK
  2. WARFARIN [Suspect]
     Indication: PERIPHERAL VASCULAR DISORDER
     Dosage: 10  MG 2 DAYS /WEEK ; 7.5 MG 5 DAYS /WEEK

REACTIONS (3)
  - INTERNATIONAL NORMALISED RATIO INCREASED [None]
  - OPERATIVE HAEMORRHAGE [None]
  - WOUND HAEMORRHAGE [None]
